FAERS Safety Report 6820988-9 (Version None)
Quarter: 2010Q3

REPORT INFORMATION
  Report Type: 
  Country: None (occurrence: None)
  Receive Date: 20100707
  Receipt Date: 20070808
  Transmission Date: 20110219
  Serious: No
  Sender: FDA-Public Use
  Company Number: US-PFIZER INC-2007065779

PATIENT
  Sex: Female

DRUGS (3)
  1. ZOLOFT [Suspect]
     Indication: ANXIETY
     Route: 048
     Dates: start: 20070601
  2. ALAVERT [Concomitant]
  3. XANAX [Concomitant]

REACTIONS (9)
  - ABNORMAL SENSATION IN EYE [None]
  - ARTHRALGIA [None]
  - FEELING HOT [None]
  - HERPES ZOSTER [None]
  - HYPERAESTHESIA [None]
  - HYPOAESTHESIA [None]
  - LACRIMATION INCREASED [None]
  - PAIN [None]
  - PARAESTHESIA [None]
